FAERS Safety Report 9839686 (Version 1)
Quarter: 2014Q1

REPORT INFORMATION
  Report Type: Spontaneous
  Country: US (occurrence: US)
  Receive Date: 20140124
  Receipt Date: 20140124
  Transmission Date: 20141002
  Serious: No
  Sender: FDA-Public Use
  Company Number: US-BIOGENIDEC-2014BI007026

PATIENT
  Age: 66 Year
  Sex: Female

DRUGS (9)
  1. TYSABRI [Suspect]
     Indication: MULTIPLE SCLEROSIS
     Route: 042
     Dates: start: 2007
  2. METFORMIN [Concomitant]
  3. LISINOPRIL [Concomitant]
  4. FUROSEMIDE [Concomitant]
  5. SIMVASTATIN [Concomitant]
  6. FERROUS GLUCONATE [Concomitant]
  7. STOOL SOFTENER [Concomitant]
  8. BACLOFEN [Concomitant]
  9. LOW DOSE ASPIRIN [Concomitant]

REACTIONS (1)
  - Urinary tract infection [Unknown]
